FAERS Safety Report 9204556 (Version 1)
Quarter: 2013Q1

REPORT INFORMATION
  Report Type: Spontaneous
  Country: US (occurrence: None)
  Receive Date: 20120709
  Receipt Date: 20120709
  Transmission Date: 20140127
  Serious: Yes (Other)
  Sender: FDA-Public Use
  Company Number: PHHY201144624

PATIENT
  Age: 81 Year
  Sex: Male
  Weight: 86.2 kg

DRUGS (14)
  1. GLEEVEC [Suspect]
     Route: 048
  2. PRAVASTATIN (PRAVASTATIN) [Concomitant]
  3. SOTALOL (SOLTALOL) [Concomitant]
  4. LOVAZA (OMEGA-3 ACID ETHYL ESTERS) [Concomitant]
  5. TEMAZEPAM (TEMAZEPAM) [Concomitant]
  6. HYDROXYUREA (HYDROXYCARBAMIDE) [Concomitant]
  7. PLAVIX (CLOPIDOGREL SULFATE) [Concomitant]
  8. PLAVIX (CLOPIDOGREL SULFATE) [Concomitant]
  9. LEXAPRO (ESCITALOPRAM OXALATE) [Concomitant]
  10. ESTER-C (CALCIUM ASCORBATE) [Concomitant]
  11. PRESERVATION (FRA/MINERAL NOS, VITAMINS NOS) [Concomitant]
  12. LUTEIN (XANTOFYL) [Concomitant]
  13. BENICAR HCT (HYDROCHLOROTHIAZIDE, OLMESARTAN MEDOXOMIL) [Concomitant]
  14. TANDEM (FERROUS FUMARATE, POLYSACCHARIDE-IRON COMPLEX) [Concomitant]

REACTIONS (4)
  - Pulmonary oedema [None]
  - Pleural effusion [None]
  - Oedema peripheral [None]
  - Fluid retention [None]
